FAERS Safety Report 8604484-4 (Version None)
Quarter: 2012Q3

REPORT INFORMATION
  Report Type: 
  Country: None (occurrence: None)
  Receive Date: 20120820
  Receipt Date: 20120816
  Transmission Date: 20120928
  Serious: No
  Sender: FDA-Public Use
  Company Number: US-PFIZER INC-2012103395

PATIENT
  Age: 85 Year
  Sex: Female
  Weight: 55.78 kg

DRUGS (3)
  1. PLAVIX [Concomitant]
     Dosage: UNK
  2. PROTONIX [Suspect]
     Dosage: UNK
  3. LIPITOR [Suspect]
     Dosage: UNK

REACTIONS (1)
  - NO ADVERSE EVENT [None]
